FAERS Safety Report 16226863 (Version 1)
Quarter: 2019Q2

REPORT INFORMATION
  Report Type: Other
  Country: HU (occurrence: HU)
  Receive Date: 20190423
  Receipt Date: 20190423
  Transmission Date: 20190711
  Serious: Yes (Death)
  Sender: FDA-Public Use
  Company Number: HU-CELLTRION INC.-2019HU020583

PATIENT

DRUGS (10)
  1. CITARABIN [Suspect]
     Active Substance: CYTARABINE
     Indication: HODGKIN^S DISEASE
  2. BRENTUXIMAB VEDOTIN [Suspect]
     Active Substance: BRENTUXIMAB VEDOTIN
     Indication: HODGKIN^S DISEASE
  3. RITUXIMAB (UNKNOWN) [Suspect]
     Active Substance: RITUXIMAB
     Indication: HODGKIN^S DISEASE
  4. VINORELBINE [Suspect]
     Active Substance: VINORELBINE\VINORELBINE TARTRATE
     Indication: HODGKIN^S DISEASE
  5. DEXAMETAZON [Suspect]
     Active Substance: DEXAMETHASONE
     Indication: HODGKIN^S DISEASE
  6. IFOSFAMIDE. [Suspect]
     Active Substance: IFOSFAMIDE
     Indication: HODGKIN^S DISEASE
  7. PREDNISON [Suspect]
     Active Substance: PREDNISONE
     Indication: HODGKIN^S DISEASE
  8. BENDAMUSTINE [Suspect]
     Active Substance: BENDAMUSTINE
     Indication: HODGKIN^S DISEASE
  9. TENOFOVIR [Suspect]
     Active Substance: TENOFOVIR
     Indication: HEPATITIS B REACTIVATION
  10. NIVOLUMAB [Concomitant]
     Active Substance: NIVOLUMAB
     Indication: HODGKIN^S DISEASE

REACTIONS (5)
  - Product use in unapproved indication [Unknown]
  - Hodgkin^s disease recurrent [Unknown]
  - Acute kidney injury [Fatal]
  - Hepatorenal syndrome [Fatal]
  - Therapy partial responder [Unknown]
